FAERS Safety Report 6905810-4 (Version None)
Quarter: 2010Q3

REPORT INFORMATION
  Report Type: 
  Country: None (occurrence: None)
  Receive Date: 20100804
  Receipt Date: 20100727
  Transmission Date: 20110219
  Serious: Yes (Hospitalization)
  Sender: FDA-Public Use
  Company Number: AR-ROCHE-666872

PATIENT
  Sex: Female
  Weight: 45.5 kg

DRUGS (9)
  1. PEGINTERFERON ALFA-2A [Suspect]
     Indication: HEPATITIS C
     Dosage: FORM: SOLUTION FOR INJECTION
     Route: 058
     Dates: start: 20090427, end: 20091026
  2. RIBAVIRIN [Suspect]
     Indication: HEPATITIS C
     Route: 048
     Dates: start: 20090427, end: 20091028
  3. BLINDED BI 201335 NA [Suspect]
     Indication: HEPATITIS C
     Dosage: DOSE BLINDED.
     Route: 048
     Dates: start: 20090427, end: 20091012
  4. LEVOTHYROXINE [Concomitant]
     Indication: HYPOTHYROIDISM
     Route: 048
     Dates: start: 20060101
  5. RAQUIFEROL [Concomitant]
     Indication: OSTEOPENIA
     Route: 048
     Dates: start: 20060101
  6. STRONTIUM RANELATE [Concomitant]
     Indication: OSTEOPENIA
     Route: 048
     Dates: start: 20090108
  7. OMEPRAZOLE [Concomitant]
     Route: 048
     Dates: start: 20090904
  8. METOCLOPRAMIDE [Concomitant]
     Indication: NAUSEA
     Route: 048
     Dates: start: 20090427
  9. ZOLPIDEM [Concomitant]
     Indication: INSOMNIA
     Route: 048
     Dates: start: 20090603

REACTIONS (1)
  - FEBRILE NEUTROPENIA [None]
